FAERS Safety Report 25223374 (Version 1)
Quarter: 2025Q2

REPORT INFORMATION
  Report Type: Spontaneous
  Country: FR (occurrence: FR)
  Receive Date: 20250422
  Receipt Date: 20250422
  Transmission Date: 20250717
  Serious: Yes (Other)
  Sender: ALCON
  Company Number: FR-Santen Oy-2025-FRA-003347

PATIENT

DRUGS (2)
  1. LATANOPROST\NETARSUDIL MESYLATE [Suspect]
     Active Substance: LATANOPROST\NETARSUDIL MESYLATE
     Indication: Glaucoma
     Route: 047
  2. AZOPT [Concomitant]
     Active Substance: BRINZOLAMIDE
     Indication: Glaucoma
     Route: 065

REACTIONS (3)
  - Asthma [Recovered/Resolved]
  - Epistaxis [Recovered/Resolved]
  - Conjunctival haemorrhage [Unknown]

NARRATIVE: CASE EVENT DATE: 20250307
